FAERS Safety Report 15698185 (Version 1)
Quarter: 2018Q4

REPORT INFORMATION
  Report Type: Report from Study
  Country: CA (occurrence: CA)
  Receive Date: 20181207
  Receipt Date: 20181207
  Transmission Date: 20190205
  Serious: Yes (Hospitalization)
  Sender: FDA-Public Use
  Company Number: CA-BIOGEN-2018BI00548574

PATIENT
  Age: 55 Year
  Sex: Female

DRUGS (1)
  1. TYSABRI [Suspect]
     Active Substance: NATALIZUMAB
     Indication: MULTIPLE SCLEROSIS
     Dosage: INFUSED OVER 1HR
     Route: 042
     Dates: start: 20131217, end: 20180906

REACTIONS (3)
  - Pelvic mass [Not Recovered/Not Resolved]
  - Ovarian mass [Not Recovered/Not Resolved]
  - Postoperative wound infection [Unknown]

NARRATIVE: CASE EVENT DATE: 201803
